FAERS Safety Report 8588884-7 (Version None)
Quarter: 2012Q3

REPORT INFORMATION
  Report Type: 
  Country: None (occurrence: None)
  Receive Date: 20120813
  Receipt Date: 20120808
  Transmission Date: 20120928
  Serious: Yes (Other)
  Sender: FDA-Public Use
  Company Number: CA-PFIZER INC-2012154613

PATIENT
  Age: 22 Year
  Sex: Female
  Weight: 44.444 kg

DRUGS (1)
  1. ADVIL [Suspect]
     Dosage: UNK
     Dates: end: 20120619

REACTIONS (1)
  - COELIAC DISEASE [None]
